FAERS Safety Report 25949200 (Version 1)
Quarter: 2025Q4

REPORT INFORMATION
  Report Type: Report from Study
  Country: RU (occurrence: RU)
  Receive Date: 20251022
  Receipt Date: 20251022
  Transmission Date: 20260117
  Serious: Yes (Other)
  Sender: AMGEN
  Company Number: RU-AMGEN-RUSSP2025206546

PATIENT
  Age: 67 Year
  Sex: Male

DRUGS (1)
  1. TARLATAMAB [Suspect]
     Active Substance: TARLATAMAB
     Indication: Small cell lung cancer
     Dosage: 1 MILLIGRAM
     Route: 065
     Dates: start: 20250902

REACTIONS (3)
  - Cytokine storm [Unknown]
  - Arrhythmia [Recovered/Resolved]
  - Hyponatraemia [Recovered/Resolved]

NARRATIVE: CASE EVENT DATE: 20250902
